FAERS Safety Report 12418381 (Version 1)
Quarter: 2016Q2

REPORT INFORMATION
  Report Type: Spontaneous
  Country: US (occurrence: None)
  Receive Date: 20160527
  Receipt Date: 20160527
  Transmission Date: 20160815
  Serious: Yes (Death, Hospitalization)
  Sender: FDA-Public Use
  Company Number: None

PATIENT
  Age: 61 Year
  Sex: Male
  Weight: 106.8 kg

DRUGS (2)
  1. CYTARABINE. [Suspect]
     Active Substance: CYTARABINE
     Dates: end: 20160422
  2. ETOPOSIDE (VP-16) [Suspect]
     Active Substance: ETOPOSIDE
     Dates: end: 20160422

REACTIONS (5)
  - Acute myocardial infarction [None]
  - Febrile neutropenia [None]
  - Blindness unilateral [None]
  - Unresponsive to stimuli [None]
  - Chills [None]

NARRATIVE: CASE EVENT DATE: 20160516
